FAERS Safety Report 6740664-0 (Version None)
Quarter: 2010Q2

REPORT INFORMATION
  Report Type: 
  Country: None (occurrence: None)
  Receive Date: 20100520
  Receipt Date: 20090825
  Transmission Date: 20101027
  Serious: Yes (Hospitalization, Other)
  Sender: FDA-Public Use
  Company Number: 2009249108

PATIENT
  Age: 14 Year
  Sex: Female
  Weight: 55.3 kg

DRUGS (2)
  1. DEPO-PROVERA [Suspect]
     Indication: CONTRACEPTION
     Dosage: 150 MG, 1ST INJECTION, INTRAMUSCULAR
     Route: 030
     Dates: start: 20090121, end: 20090121
  2. DEPO-PROVERA [Suspect]
     Dosage: 150 MG, MOST RECENT, INTRAMUSCULAR
     Route: 030
     Dates: start: 20090713

REACTIONS (5)
  - CONVULSION [None]
  - DIZZINESS [None]
  - DYSPEPSIA [None]
  - URINARY TRACT INFECTION [None]
  - VOMITING [None]
